FAERS Safety Report 16279798 (Version 2)
Quarter: 2019Q2

REPORT INFORMATION
  Report Type: Spontaneous
  Country: NL (occurrence: NL)
  Receive Date: 20190507
  Receipt Date: 20190511
  Transmission Date: 20190711
  Serious: Yes (Hospitalization, Other)
  Sender: FDA-Public Use
  Company Number: NL-TEVA-2019-NL-1046029

PATIENT
  Age: 73 Year
  Sex: Female
  Weight: 85 kg

DRUGS (4)
  1. BENDAMUSTINE HYDROCHLORIDE. [Suspect]
     Active Substance: BENDAMUSTINE HYDROCHLORIDE
     Dosage: 100 MG/M2 BODY SURFACE, CYCLIC
     Route: 042
     Dates: end: 20180916
  2. BENDAMUSTINE HYDROCHLORIDE. [Suspect]
     Active Substance: BENDAMUSTINE HYDROCHLORIDE
     Indication: CHRONIC LYMPHOCYTIC LEUKAEMIA
     Dosage: 100 MG/M2 BODY SURFACE, CYCLIC ( DAY 1 AND 2 AT 4 WEEKS CYCLE)
     Route: 042
     Dates: start: 20180807, end: 20180808
  3. RITUXIMAB. [Concomitant]
     Active Substance: RITUXIMAB
     Indication: CHRONIC LYMPHOCYTIC LEUKAEMIA
     Route: 065
  4. BENDAMUSTINE HYDROCHLORIDE. [Suspect]
     Active Substance: BENDAMUSTINE HYDROCHLORIDE
     Dosage: 100 MG/M2 BODY SURFACE, CYCLIC ( DAY 1 AND 2 AT 4 WEEKS CYCLE)
     Route: 042
     Dates: start: 20180912, end: 20180913

REACTIONS (3)
  - Chills [Recovered/Resolved with Sequelae]
  - Swelling of eyelid [Recovered/Resolved with Sequelae]
  - Swelling face [Recovered/Resolved with Sequelae]

NARRATIVE: CASE EVENT DATE: 20180918
